FAERS Safety Report 10728656 (Version 1)
Quarter: 2015Q1

REPORT INFORMATION
  Report Type: Spontaneous
  Country: US (occurrence: US)
  Receive Date: 20150122
  Receipt Date: 20150122
  Transmission Date: 20150721
  Serious: No
  Sender: FDA-Public Use
  Company Number: US-TEVA-528254USA

PATIENT
  Age: 79 Year
  Sex: Male

DRUGS (1)
  1. ATENOLOL. [Suspect]
     Active Substance: ATENOLOL
     Dosage: 25 MILLIGRAM DAILY;
     Route: 048

REACTIONS (6)
  - Malaise [Unknown]
  - Depression [Unknown]
  - Dizziness [Recovering/Resolving]
  - Feeling abnormal [Recovering/Resolving]
  - Nausea [Recovering/Resolving]
  - Product quality issue [Unknown]

NARRATIVE: CASE EVENT DATE: 20141207
